FAERS Safety Report 4939245-0 (Version None)
Quarter: 2006Q1

REPORT INFORMATION
  Report Type: 
  Country: None (occurrence: None)
  Receive Date: 20060309
  Receipt Date: 20060309
  Transmission Date: 20060701
  Serious: No
  Sender: FDA-Public Use
  Company Number: None

PATIENT
  Age: 74 Year
  Sex: Female
  Weight: 79.8331 kg

DRUGS (1)
  1. FOSAMAX [Suspect]

REACTIONS (1)
  - ABDOMINAL DISCOMFORT [None]
